FAERS Safety Report 8272291-0 (Version None)
Quarter: 2012Q2

REPORT INFORMATION
  Report Type: 
  Country: None (occurrence: None)
  Receive Date: 20120410
  Receipt Date: 20120326
  Transmission Date: 20120825
  Serious: Yes (Other)
  Sender: FDA-Public Use
  Company Number: US-WATSON-2012-05552

PATIENT
  Age: 14 Month
  Sex: Female

DRUGS (1)
  1. QUINIDINE SULFATE [Suspect]
     Indication: BRUGADA SYNDROME
     Dosage: UNK
     Route: 065

REACTIONS (1)
  - ELECTROCARDIOGRAM QRS COMPLEX PROLONGED [None]
